FAERS Safety Report 12857544 (Version 1)
Quarter: 2016Q4

REPORT INFORMATION
  Report Type: Spontaneous
  Country: FR (occurrence: FR)
  Receive Date: 20161018
  Receipt Date: 20161018
  Transmission Date: 20170207
  Serious: Yes (Disabling, Other)
  Sender: FDA-Public Use
  Company Number: FR-AMGEN-FRASP2016141011

PATIENT
  Age: 84 Year
  Sex: Male

DRUGS (2)
  1. ERYTHROPOIETIN [Concomitant]
     Active Substance: ERYTHROPOIETIN
  2. ARANESP [Suspect]
     Active Substance: DARBEPOETIN ALFA
     Indication: AUTOIMMUNE HAEMOLYTIC ANAEMIA
     Dosage: UNK UNK, QWK
     Route: 058
     Dates: start: 20160712, end: 20160926

REACTIONS (1)
  - Optic ischaemic neuropathy [Recovered/Resolved with Sequelae]

NARRATIVE: CASE EVENT DATE: 20160823
